FAERS Safety Report 9804611 (Version 2)
Quarter: 2014Q3

REPORT INFORMATION
  Report Type: Spontaneous
  Country: US (occurrence: US)
  Receive Date: 20140108
  Receipt Date: 20140901
  Transmission Date: 20150326
  Serious: Yes (Hospitalization, Other)
  Sender: FDA-Public Use
  Company Number: US-009507513-1401USA002603

PATIENT
  Sex: Female

DRUGS (2)
  1. NUVARING [Suspect]
     Active Substance: ETHINYL ESTRADIOL\ETONOGESTREL
     Dosage: UNK
     Route: 067
     Dates: start: 201102, end: 201206
  2. NUVARING [Suspect]
     Active Substance: ETHINYL ESTRADIOL\ETONOGESTREL
     Dosage: UNK
     Route: 067
     Dates: start: 200808, end: 2009

REACTIONS (7)
  - Constipation [Unknown]
  - Cholelithiasis [Unknown]
  - Abdominal pain [Recovered/Resolved]
  - Anaemia [Unknown]
  - Pulmonary embolism [Unknown]
  - Scoliosis [Unknown]
  - Atelectasis [Unknown]

NARRATIVE: CASE EVENT DATE: 201205
